FAERS Safety Report 19081235 (Version 1)
Quarter: 2021Q1

REPORT INFORMATION
  Report Type: Other
  Country: PT (occurrence: PT)
  Receive Date: 20210331
  Receipt Date: 20210331
  Transmission Date: 20210420
  Serious: Yes (Hospitalization, Other)
  Sender: FDA-Public Use
  Company Number: PT-INVATECH-000054

PATIENT
  Age: 38 Year
  Sex: Female

DRUGS (3)
  1. PYRIDOSTIGMINE [Suspect]
     Active Substance: PYRIDOSTIGMINE
     Indication: MYASTHENIA GRAVIS
     Dosage: 360 MG/DAY
  2. IMMUNOGLOBULIN (IVIG) [Suspect]
     Active Substance: HUMAN IMMUNOGLOBULIN G
     Indication: MYASTHENIA GRAVIS
     Dosage: 2 G/KG OVER 5 DAYS, 4 WEEKS APART
     Route: 042
  3. PREDNISOLONE. [Suspect]
     Active Substance: PREDNISOLONE
     Indication: MYASTHENIA GRAVIS
     Dosage: 1 MG/KG/DAY (TOTAL OF 50 MG/DAY, INCREMENT OF 10 MG WEEKLY)

REACTIONS (5)
  - Quadriparesis [Recovered/Resolved]
  - Condition aggravated [Recovered/Resolved]
  - Diplegia [Recovered/Resolved]
  - Dysphagia [Recovered/Resolved]
  - Exposure during pregnancy [Unknown]
